FAERS Safety Report 4620450-8 (Version None)
Quarter: 2005Q1

REPORT INFORMATION
  Report Type: 
  Country: None (occurrence: None)
  Receive Date: 20050324
  Receipt Date: 20050311
  Transmission Date: 20050727
  Serious: Yes (Other)
  Sender: FDA-Public Use
  Company Number: HQWYE062611MAR05

PATIENT
  Age: 77 Year
  Sex: Male

DRUGS (2)
  1. INIPOMP (PANTOPRAZOLE, TABLET, DELAYED RELEASE) [Suspect]
     Indication: DIAPHRAGMATIC HERNIA
     Dosage: SEE IMAGE
     Route: 048
     Dates: start: 19950101
  2. INIPOMP (PANTOPRAZOLE, TABLET, DELAYED RELEASE) [Suspect]
     Indication: DIAPHRAGMATIC HERNIA
     Dosage: SEE IMAGE
     Route: 048
     Dates: start: 20041201

REACTIONS (2)
  - NEUROPATHY PERIPHERAL [None]
  - PERNICIOUS ANAEMIA [None]
